FAERS Safety Report 20808093 (Version 1)
Quarter: 2022Q2

REPORT INFORMATION
  Report Type: Spontaneous
  Country: US (occurrence: US)
  Receive Date: 20220510
  Receipt Date: 20220510
  Transmission Date: 20220721
  Serious: No
  Sender: FDA-Public Use
  Company Number: US-BAYER-2022A065383

PATIENT
  Age: 81 Year
  Sex: Female

DRUGS (2)
  1. ESTRADIOL [Suspect]
     Active Substance: ESTRADIOL
     Indication: Hysterectomy
     Dosage: UNK
     Route: 062
     Dates: start: 1997
  2. ESTRADIOL [Suspect]
     Active Substance: ESTRADIOL
     Indication: Osteoporosis

REACTIONS (1)
  - Application site vesicles [None]
